FAERS Safety Report 22202137 (Version 1)
Quarter: 2023Q2

REPORT INFORMATION
  Report Type: Spontaneous
  Country: US (occurrence: None)
  Receive Date: 20230410
  Receipt Date: 20230410
  Transmission Date: 20230722
  Serious: Yes (Other)
  Sender: FDA-Public Use
  Company Number: None

PATIENT
  Age: 33 Year
  Sex: Male
  Weight: 85.5 kg

DRUGS (5)
  1. BENZOCAINE [Suspect]
     Active Substance: BENZOCAINE
  2. Selegiline transdermal patch [Concomitant]
  3. DESCOVY [Concomitant]
     Active Substance: EMTRICITABINE\TENOFOVIR ALAFENAMIDE FUMARATE
  4. SEROQUEL [Concomitant]
     Active Substance: QUETIAPINE FUMARATE
  5. Magnesium theronate [Concomitant]

REACTIONS (2)
  - Haemorrhage [None]
  - Irritability [None]

NARRATIVE: CASE EVENT DATE: 20230410
